FAERS Safety Report 8157236-6 (Version None)
Quarter: 2012Q1

REPORT INFORMATION
  Report Type: 
  Country: None (occurrence: None)
  Receive Date: 20120222
  Receipt Date: 20120222
  Transmission Date: 20120608
  Serious: Yes (Life-Threatening, Other)
  Sender: FDA-Public Use
  Company Number: None

PATIENT
  Age: 52 Year
  Sex: Female
  Weight: 100.69 kg

DRUGS (1)
  1. IPRATROPIUM BROMIDE [Suspect]
     Indication: ASTHMA
     Dosage: 90DOSES
     Route: 065
     Dates: start: 20120212, end: 20120214

REACTIONS (5)
  - EPISTAXIS [None]
  - MUSCLE SPASMS [None]
  - HAEMATOCHEZIA [None]
  - CHEST PAIN [None]
  - RENAL DISORDER [None]
